FAERS Safety Report 10287337 (Version 3)
Quarter: 2014Q3

REPORT INFORMATION
  Report Type: Spontaneous
  Country: DE (occurrence: DE)
  Receive Date: 20140709
  Receipt Date: 20140728
  Transmission Date: 20150326
  Serious: Yes (Death, Hospitalization)
  Sender: FDA-Public Use
  Company Number: DE-TEVA-468466GER

PATIENT
  Age: 6 Year
  Sex: Female
  Weight: 20 kg

DRUGS (6)
  1. OMEPRAZOL [Suspect]
     Active Substance: OMEPRAZOLE
     Dates: start: 20120407
  2. METAMIZOL [Suspect]
     Active Substance: METAMIZOLE SODIUM
     Dates: start: 20120407
  3. TOBRAMYCIN [Suspect]
     Active Substance: TOBRAMYCIN
     Dates: start: 20120407
  4. AMOXICILLIN W/CLAVULANIC ACID [Suspect]
     Active Substance: AMOXICILLIN\CLAVULANIC ACID
     Dates: start: 20120407
  5. VALPROATE SODIUM. [Suspect]
     Active Substance: VALPROATE SODIUM
     Route: 040
     Dates: start: 20120409, end: 20120524
  6. VALPROATE SODIUM. [Suspect]
     Active Substance: VALPROATE SODIUM
     Indication: EPILEPSY
     Dosage: 630 MILLIGRAM DAILY;
     Route: 048
     Dates: start: 2010, end: 20120408

REACTIONS (1)
  - Pancytopenia [Fatal]

NARRATIVE: CASE EVENT DATE: 201204
